FAERS Safety Report 4718235-7 (Version None)
Quarter: 2005Q3

REPORT INFORMATION
  Report Type: 
  Country: None (occurrence: None)
  Receive Date: 20050719
  Receipt Date: 20050226
  Transmission Date: 20060218
  Serious: Yes (Other)
  Sender: FDA-Public Use
  Company Number: 2005032457

PATIENT
  Age: 76 Year
  Sex: Male
  Weight: 106.5953 kg

DRUGS (4)
  1. CELEBREX [Suspect]
     Indication: ARTHRITIS
     Dosage: (200 MG, UNKNOWN)
  2. DILTIAZEM HYDROCHLORIDE [Suspect]
     Indication: ILL-DEFINED DISORDER
     Dosage: (240 MG, UNKNOWN)
  3. FUROSEMIDE [Concomitant]
  4. HYDRALAZINE HCL [Concomitant]

REACTIONS (4)
  - CEREBROVASCULAR ACCIDENT [None]
  - FEELING ABNORMAL [None]
  - PAIN IN EXTREMITY [None]
  - SPEECH DISORDER [None]
